FAERS Safety Report 4478729-9 (Version None)
Quarter: 2004Q4

REPORT INFORMATION
  Report Type: 
  Country: None (occurrence: None)
  Receive Date: 20041019
  Receipt Date: 20041010
  Transmission Date: 20050328
  Serious: Yes (Death, Other)
  Sender: FDA-Public Use
  Company Number: PHEH2004US11159

PATIENT
  Age: 66 Year
  Sex: Female

DRUGS (3)
  1. GLEEVEC [Suspect]
     Indication: CHRONIC MYELOID LEUKAEMIA
     Dosage: 400 MG, UNK
     Route: 048
     Dates: start: 20010501
  2. GLEEVEC [Suspect]
     Dosage: 600 MG, UNK
     Route: 048
  3. GLEEVEC [Suspect]
     Dosage: 800 MG, UNK
     Route: 048
     Dates: end: 20040601

REACTIONS (3)
  - INTERSTITIAL LUNG DISEASE [None]
  - PNEUMONITIS [None]
  - RESPIRATORY FAILURE [None]
